FAERS Safety Report 7169228-4 (Version None)
Quarter: 2010Q4

REPORT INFORMATION
  Report Type: 
  Country: None (occurrence: None)
  Receive Date: 20101216
  Receipt Date: 20100118
  Transmission Date: 20110411
  Serious: Yes (Other)
  Sender: FDA-Public Use
  Company Number: US-AMGEN-QUU384159

PATIENT

DRUGS (8)
  1. ENBREL [Suspect]
     Indication: RHEUMATOID ARTHRITIS
     Dosage: 50 MG, QWK
     Route: 058
     Dates: start: 20091208, end: 20100105
  2. VALSARTAN [Concomitant]
     Dosage: UNK UNK, UNK
     Dates: start: 20000101
  3. CARVEDILOL [Concomitant]
     Dosage: UNK UNK, UNK
     Dates: start: 20000101
  4. AMLODIPINE BESYLATE [Concomitant]
     Dosage: UNK UNK, UNK
     Dates: start: 20000101
  5. ASPIRIN [Concomitant]
     Dosage: UNK UNK, UNK
     Dates: start: 20000101
  6. PANTOPRAZOLE SODIUM [Concomitant]
     Dosage: UNK UNK, UNK
     Dates: start: 20000101
  7. DULOXETINE HYDROCHLORIDE [Concomitant]
     Dosage: UNK UNK, UNK
     Dates: start: 20060101
  8. CLONAZEPAM [Concomitant]
     Dosage: UNK UNK, UNK
     Dates: start: 20010101

REACTIONS (12)
  - ACNE [None]
  - BLOOD PRESSURE INCREASED [None]
  - CONTUSION [None]
  - DEPRESSION [None]
  - FATIGUE [None]
  - JOINT SWELLING [None]
  - MALAISE [None]
  - MYALGIA [None]
  - PYREXIA [None]
  - RASH [None]
  - SINUSITIS [None]
  - SKIN HAEMORRHAGE [None]
